FAERS Safety Report 15907445 (Version 1)
Quarter: 2019Q1

REPORT INFORMATION
  Report Type: Report from Study
  Country: US (occurrence: US)
  Receive Date: 20190204
  Receipt Date: 20190204
  Transmission Date: 20190417
  Serious: Yes (Hospitalization, Other)
  Sender: FDA-Public Use
  Company Number: US-SA-2019SA026454

PATIENT
  Age: 66 Year
  Sex: Male

DRUGS (1)
  1. INSULIN GLARGINE [Suspect]
     Active Substance: INSULIN GLARGINE
     Indication: DIABETES MELLITUS
     Dosage: (30-35 UNITS)QD
     Route: 058

REACTIONS (6)
  - Pancreatic disorder [Recovered/Resolved]
  - Pancreatitis [Not Recovered/Not Resolved]
  - Vascular dementia [Not Recovered/Not Resolved]
  - Pancreatic cyst [Unknown]
  - Gallbladder disorder [Recovered/Resolved]
  - Dementia [Recovered/Resolved]

NARRATIVE: CASE EVENT DATE: 201810
